FAERS Safety Report 17760863 (Version 1)
Quarter: 2020Q2

REPORT INFORMATION
  Report Type: Spontaneous
  Country: US (occurrence: US)
  Receive Date: 20200508
  Receipt Date: 20200508
  Transmission Date: 20200714
  Serious: Yes (Other)
  Sender: FDA-Public Use
  Company Number: NVSC2020US124504

PATIENT
  Age: 63 Year
  Sex: Male

DRUGS (5)
  1. PACLITAXEL. [Suspect]
     Active Substance: PACLITAXEL
     Indication: LYMPHADENOPATHY
     Dosage: 4 CYCLES
     Route: 065
  2. CARBOPLATIN. [Suspect]
     Active Substance: CARBOPLATIN
     Indication: LYMPHADENOPATHY
     Dosage: 4 CYCLES
     Route: 065
  3. PACLITAXEL. [Suspect]
     Active Substance: PACLITAXEL
     Indication: BONE LESION
  4. CARBOPLATIN. [Suspect]
     Active Substance: CARBOPLATIN
     Indication: BONE LESION
  5. CARBOPLATIN. [Suspect]
     Active Substance: CARBOPLATIN
     Indication: PENILE SQUAMOUS CELL CARCINOMA

REACTIONS (3)
  - Neuropathy peripheral [Unknown]
  - Product use in unapproved indication [Unknown]
  - Anaemia [Unknown]
